FAERS Safety Report 22655406 (Version 1)
Quarter: 2023Q2

REPORT INFORMATION
  Report Type: Report from Study
  Country: CA (occurrence: CA)
  Receive Date: 20230629
  Receipt Date: 20230629
  Transmission Date: 20230721
  Serious: Yes (Hospitalization)
  Sender: FDA-Public Use
  Company Number: CA-AMGEN-CANSL2023063903

PATIENT
  Age: 61 Year
  Sex: Female

DRUGS (1)
  1. ADALIMUMAB [Suspect]
     Active Substance: ADALIMUMAB
     Indication: Pustular psoriasis
     Dosage: 40 MILLIGRAM, QWK
     Route: 065
     Dates: start: 20230327

REACTIONS (7)
  - Blood glucose increased [Unknown]
  - Pulmonary embolism [Unknown]
  - Escherichia infection [Unknown]
  - Klebsiella infection [Unknown]
  - Chronic lymphocytic leukaemia [Unknown]
  - Nerve injury [Unknown]
  - Fall [Unknown]
